FAERS Safety Report 5377399-5 (Version None)
Quarter: 2007Q3

REPORT INFORMATION
  Report Type: 
  Country: None (occurrence: None)
  Receive Date: 20070703
  Receipt Date: 20070627
  Transmission Date: 20080115
  Serious: Yes (Other)
  Sender: FDA-Public Use
  Company Number: A0661108A

PATIENT
  Age: 40 Year
  Sex: Female

DRUGS (10)
  1. PAXIL [Suspect]
     Indication: DRUG USE FOR UNKNOWN INDICATION
     Route: 048
  2. BETASERON [Suspect]
     Dosage: 8U UNKNOWN
     Route: 058
  3. ALERTEC (ASTEMIZOLE) [Concomitant]
  4. CALCIUM CHLORIDE [Concomitant]
  5. CITALOPRAM HYDROBROMIDE [Concomitant]
  6. DITROPAN [Concomitant]
  7. IMOVANE [Concomitant]
  8. MULTI-VITAMIN [Concomitant]
  9. VITAMIN B [Concomitant]
  10. WELLBUTRIN [Concomitant]

REACTIONS (5)
  - CONVULSION [None]
  - DIZZINESS [None]
  - INJECTION SITE PAIN [None]
  - INSOMNIA [None]
  - MEDICATION ERROR [None]
